FAERS Safety Report 5891088-X (Version None)
Quarter: 2008Q3

REPORT INFORMATION
  Report Type: 
  Country: None (occurrence: None)
  Receive Date: 20080916
  Receipt Date: 20080916
  Transmission Date: 20090109
  Serious: Yes (Hospitalization)
  Sender: FDA-Public Use
  Company Number: None

PATIENT
  Age: 51 Year
  Sex: Male
  Weight: 77 kg

DRUGS (2)
  1. PHENYTOIN [Suspect]
     Indication: CONVULSION
     Dosage: 200 MG  BID  PO
     Route: 048
     Dates: start: 20020922, end: 20080708
  2. GABAPENTIN [Suspect]
     Dosage: 300 MG BID PO
     Route: 048
     Dates: start: 20080519, end: 20080708

REACTIONS (6)
  - BLOOD PRESSURE DECREASED [None]
  - CONFUSIONAL STATE [None]
  - CONVULSION [None]
  - HEART RATE INCREASED [None]
  - POSTICTAL STATE [None]
  - PYREXIA [None]
